FAERS Safety Report 23948498 (Version 2)
Quarter: 2024Q4

REPORT INFORMATION
  Report Type: Spontaneous
  Country: JP (occurrence: JP)
  Receive Date: 20240607
  Receipt Date: 20241010
  Transmission Date: 20250115
  Serious: Yes (Other)
  Sender: AMGEN
  Company Number: JP-AMGEN-JPNSP2024109741

PATIENT
  Sex: Female

DRUGS (5)
  1. LUMAKRAS [Suspect]
     Active Substance: SOTORASIB
     Indication: K-ras gene mutation
     Dosage: 960 MILLIGRAM, QD
     Route: 048
     Dates: start: 20240310, end: 20240412
  2. LUMAKRAS [Suspect]
     Active Substance: SOTORASIB
     Indication: Non-small cell lung cancer
     Dosage: 480 MILLIGRAM, QD, DOSE REDUCED
     Route: 048
     Dates: start: 20240426, end: 20240510
  3. LUMAKRAS [Suspect]
     Active Substance: SOTORASIB
     Dosage: 240 MILLIGRAM, QD, DOSE REDUCED
     Route: 048
     Dates: start: 20240521, end: 20240703
  4. IPILIMUMAB [Suspect]
     Active Substance: IPILIMUMAB
     Indication: Non-small cell lung cancer
     Dosage: UNK
     Route: 065
  5. NIVOLUMAB [Suspect]
     Active Substance: NIVOLUMAB
     Indication: Non-small cell lung cancer
     Dosage: UNK
     Route: 065

REACTIONS (3)
  - Non-small cell lung cancer [Unknown]
  - Hepatic function abnormal [Recovering/Resolving]
  - Diarrhoea [Unknown]

NARRATIVE: CASE EVENT DATE: 20240101
